FAERS Safety Report 22110993 (Version 1)
Quarter: 2023Q1

REPORT INFORMATION
  Report Type: Report from Study
  Country: BR (occurrence: BR)
  Receive Date: 20230317
  Receipt Date: 20230317
  Transmission Date: 20230418
  Serious: Yes (Other)
  Sender: FDA-Public Use
  Company Number: BR-002147023-NVSC2023BR058731

PATIENT

DRUGS (1)
  1. DIOVAN [Suspect]
     Active Substance: VALSARTAN
     Indication: Product used for unknown indication
     Dosage: 40 MG ( 7 YEARS AGO)
     Route: 065
     Dates: end: 2018

REACTIONS (7)
  - Cerebrovascular accident [Unknown]
  - Thrombosis [Unknown]
  - Endocarditis [Unknown]
  - Blood pressure increased [Unknown]
  - Arteriosclerosis [Unknown]
  - Infection [Unknown]
  - Blood pressure abnormal [Unknown]
